FAERS Safety Report 4915290-6 (Version None)
Quarter: 2006Q1

REPORT INFORMATION
  Report Type: 
  Country: None (occurrence: None)
  Receive Date: 20060217
  Receipt Date: 20060127
  Transmission Date: 20060701
  Serious: Yes (Hospitalization)
  Sender: FDA-Public Use
  Company Number: US-GLAXOSMITHKLINE-A0591279A

PATIENT
  Age: 49 Year
  Sex: Female

DRUGS (4)
  1. WELLBUTRIN [Suspect]
     Indication: DEPRESSION
     Route: 048
     Dates: start: 20051214, end: 20051215
  2. PAXIL [Suspect]
     Indication: DEPRESSION
     Dosage: 20MG PER DAY
     Route: 048
  3. ESTRATEST [Concomitant]
  4. CADUET [Concomitant]

REACTIONS (5)
  - ANXIETY [None]
  - BLISTER [None]
  - HYPERSENSITIVITY [None]
  - NICOTINE DEPENDENCE [None]
  - URTICARIA [None]
